FAERS Safety Report 23869392 (Version 1)
Quarter: 2024Q2

REPORT INFORMATION
  Report Type: Spontaneous
  Country: US (occurrence: US)
  Receive Date: 20240517
  Receipt Date: 20240517
  Transmission Date: 20240715
  Serious: No
  Sender: FDA-Public Use
  Company Number: US-JUBILANT RADIOPHARMA-2024US000195

PATIENT

DRUGS (2)
  1. DRAXIMAGE MAA [Suspect]
     Active Substance: TECHNETIUM TC-99M ALBUMIN AGGREGATED
     Indication: Pulmonary imaging procedure
     Dosage: UNK
     Route: 042
     Dates: start: 20240326, end: 20240326
  2. XENON [Suspect]
     Active Substance: XENON\XENON XE-133
     Dosage: UNK
     Dates: start: 20240326, end: 20240326

REACTIONS (2)
  - Pruritus [Not Recovered/Not Resolved]
  - Urticaria [Not Recovered/Not Resolved]

NARRATIVE: CASE EVENT DATE: 20240326
